FAERS Safety Report 6104052-2 (Version None)
Quarter: 2009Q1

REPORT INFORMATION
  Report Type: 
  Country: None (occurrence: None)
  Receive Date: 20090302
  Receipt Date: 20090227
  Transmission Date: 20090719
  Serious: Yes (Other)
  Sender: FDA-Public Use
  Company Number: 100#03#2009-00759

PATIENT
  Age: 74 Year
  Sex: Female

DRUGS (3)
  1. TRAMADOL HCL [Suspect]
     Indication: ARTHRALGIA
     Dosage: 100 MG  FOUR TIMES A DAY
  2. CO-CARELDOPA (SINEMET) (CARBIDOPA, LEVODOPA) [Concomitant]
  3. ROPINIROLE [Concomitant]

REACTIONS (5)
  - ACTIVITIES OF DAILY LIVING IMPAIRED [None]
  - COGWHEEL RIGIDITY [None]
  - CONDITION AGGRAVATED [None]
  - GENERAL PHYSICAL HEALTH DETERIORATION [None]
  - PARKINSON'S DISEASE [None]
